FAERS Safety Report 22253080 (Version 2)
Quarter: 2023Q2

REPORT INFORMATION
  Report Type: Report from Study
  Country: FI (occurrence: FI)
  Receive Date: 20230426
  Receipt Date: 20230428
  Transmission Date: 20230721
  Serious: Yes (Hospitalization)
  Sender: FDA-Public Use
  Company Number: FI-ABBVIE-4738582

PATIENT
  Age: 85 Year
  Sex: Female

DRUGS (2)
  1. CARBIDOPA\LEVODOPA [Suspect]
     Active Substance: CARBIDOPA\LEVODOPA
     Indication: Product used for unknown indication
     Route: 050
  2. CARBIDOPA\LEVODOPA [Suspect]
     Active Substance: CARBIDOPA\LEVODOPA
     Route: 050

REACTIONS (5)
  - Fall [Unknown]
  - Wrong device used [Recovered/Resolved]
  - Off label use [Recovered/Resolved]
  - Device occlusion [Recovered/Resolved]
  - Rib fracture [Unknown]

NARRATIVE: CASE EVENT DATE: 20230304
